FAERS Safety Report 19868236 (Version 6)
Quarter: 2022Q1

REPORT INFORMATION
  Report Type: Spontaneous
  Country: JP (occurrence: JP)
  Receive Date: 20210922
  Receipt Date: 20220303
  Transmission Date: 20220423
  Serious: Yes (Death, Other)
  Sender: FDA-Public Use
  Company Number: JP-BRISTOL-MYERS SQUIBB COMPANY-BMS-2021-094711

PATIENT
  Age: 78 Year
  Sex: Male
  Weight: 52.4 kg

DRUGS (6)
  1. OPDIVO [Suspect]
     Active Substance: NIVOLUMAB
     Indication: Pleural mesothelioma malignant
     Dosage: 360 MILLIGRAM
     Route: 041
     Dates: start: 20210609, end: 20210609
  2. OPDIVO [Suspect]
     Active Substance: NIVOLUMAB
     Dosage: 360 MILLIGRAM, ONE TIME DOSE
     Route: 041
     Dates: start: 20210630, end: 20210630
  3. OPDIVO [Suspect]
     Active Substance: NIVOLUMAB
     Dosage: 360 MILLIGRAM, ONE TIME DOSE
     Route: 041
     Dates: start: 20210729, end: 20210729
  4. OPDIVO [Suspect]
     Active Substance: NIVOLUMAB
     Dosage: 360 MILLIGRAM, ONE TIME DOSE
     Route: 041
     Dates: start: 20210819, end: 20210819
  5. YERVOY [Suspect]
     Active Substance: IPILIMUMAB
     Indication: Pleural mesothelioma malignant
     Dosage: 57.75 MILLIGRAM, ONE TIME DOSE
     Route: 041
     Dates: start: 20210609, end: 20210609
  6. YERVOY [Suspect]
     Active Substance: IPILIMUMAB
     Dosage: 54.9 MILLIGRAM, ONE TIME DOSE
     Route: 041
     Dates: start: 20210729, end: 20210729

REACTIONS (3)
  - Malignant neoplasm progression [Fatal]
  - Inappropriate antidiuretic hormone secretion [Recovering/Resolving]
  - Adrenal insufficiency [Not Recovered/Not Resolved]

NARRATIVE: CASE EVENT DATE: 20210806
